FAERS Safety Report 7935661-3 (Version None)
Quarter: 2011Q4

REPORT INFORMATION
  Report Type: 
  Country: None (occurrence: None)
  Receive Date: 20111123
  Receipt Date: 20111115
  Transmission Date: 20120403
  Serious: Yes (Hospitalization, Other)
  Sender: FDA-Public Use
  Company Number: US-ELI_LILLY_AND_COMPANY-US201111005694

PATIENT
  Sex: Male

DRUGS (5)
  1. HUMULIN R [Suspect]
     Dosage: 20 U, EACH EVENING
     Route: 065
     Dates: start: 20111111
  2. LEVEMIR [Concomitant]
     Dosage: 100 U, BID
  3. NOVOLOG [Concomitant]
     Dosage: 60 U, PRN
  4. HUMULIN R [Suspect]
     Indication: DIABETES MELLITUS
     Dosage: 40 U, EACH MORNING
     Route: 065
     Dates: start: 20111111
  5. METFORMIN HCL [Concomitant]
     Dosage: UNK
     Dates: end: 20111110

REACTIONS (6)
  - HYPOTENSION [None]
  - BLOOD GLUCOSE INCREASED [None]
  - BLOOD POTASSIUM INCREASED [None]
  - RENAL FAILURE [None]
  - LOSS OF CONSCIOUSNESS [None]
  - CONVULSION [None]
